FAERS Safety Report 24787030 (Version 2)
Quarter: 2025Q1

REPORT INFORMATION
  Report Type: Spontaneous
  Country: DE (occurrence: DE)
  Receive Date: 20241230
  Receipt Date: 20250114
  Transmission Date: 20250409
  Serious: Yes (Other)
  Sender: ALKEM
  Company Number: DE-ALKEM LABORATORIES LIMITED-DE-ALKEM-2024-26183

PATIENT
  Sex: Female

DRUGS (7)
  1. IBUPROFEN [Suspect]
     Active Substance: IBUPROFEN
     Indication: Axial spondyloarthritis
     Dosage: 600 MILLIGRAM, ONCE WEEKLY
     Route: 065
     Dates: start: 20191014
  2. ETORICOXIB [Suspect]
     Active Substance: ETORICOXIB
     Indication: Axial spondyloarthritis
     Route: 065
     Dates: start: 20180701, end: 20190110
  3. COSENTYX [Suspect]
     Active Substance: SECUKINUMAB
     Indication: Axial spondyloarthritis
     Route: 042
     Dates: start: 20180807
  4. COSENTYX [Suspect]
     Active Substance: SECUKINUMAB
     Route: 042
     Dates: start: 20180807, end: 20200615
  5. COSENTYX [Suspect]
     Active Substance: SECUKINUMAB
     Route: 065
  6. METHOTREXATE [Suspect]
     Active Substance: METHOTREXATE
     Indication: Axial spondyloarthritis
     Dosage: 15 MILLIGRAM, ONCE WEEKLY
     Route: 065
     Dates: start: 20161101
  7. CIMZIA [Concomitant]
     Active Substance: CERTOLIZUMAB PEGOL
     Indication: Product used for unknown indication
     Route: 065
     Dates: start: 20201001, end: 20210126

REACTIONS (3)
  - Unwanted pregnancy [Recovered/Resolved]
  - Arthritis [Unknown]
  - Maternal exposure during pregnancy [Unknown]

NARRATIVE: CASE EVENT DATE: 20191115
